FAERS Safety Report 13371602 (Version 1)
Quarter: 2017Q1

REPORT INFORMATION
  Report Type: Spontaneous
  Country: US (occurrence: US)
  Receive Date: 20170324
  Receipt Date: 20170324
  Transmission Date: 20170429
  Serious: Yes (Hospitalization)
  Sender: FDA-Public Use
  Company Number: US-BEH-2017079050

PATIENT
  Age: 47 Year
  Sex: Male

DRUGS (1)
  1. STIMATE [Suspect]
     Active Substance: DESMOPRESSIN ACETATE
     Indication: VON WILLEBRAND^S DISEASE
     Dosage: 1.5 MG, PRN
     Route: 045
     Dates: start: 20160927

REACTIONS (4)
  - Hospitalisation [Unknown]
  - Headache [Unknown]
  - Flushing [Unknown]
  - Disorientation [Unknown]

NARRATIVE: CASE EVENT DATE: 201611
